FAERS Safety Report 10464578 (Version 5)
Quarter: 2015Q1

REPORT INFORMATION
  Report Type: Spontaneous
  Country: BR (occurrence: BR)
  Receive Date: 20140919
  Receipt Date: 20150330
  Transmission Date: 20150720
  Serious: Yes (Death, Congenital Anomaly)
  Sender: FDA-Public Use
  Company Number: BR-GALDERMA-BR14003418

PATIENT
  Age: 16 Week

DRUGS (10)
  1. CLOB-X GEL [Suspect]
     Active Substance: CLOBETASOL PROPIONATE
     Dosage: 0.05%
     Route: 064
     Dates: start: 20140613, end: 201407
  2. EPIDUO [Suspect]
     Active Substance: ADAPALENE\BENZOYL PEROXIDE
     Indication: WRONG DRUG ADMINISTERED
     Dosage: 0.1%-2.5%
     Route: 064
     Dates: start: 20140419, end: 20140715
  3. EPISOL SPF 30 [Suspect]
     Active Substance: OXYBENZONE\PADIMATE O
     Route: 064
     Dates: start: 20140419, end: 20140715
  4. MINOXIDIL. [Suspect]
     Active Substance: MINOXIDIL
     Dosage: 5%
     Route: 064
     Dates: start: 20140616, end: 20140715
  5. ACTINE SOAP [Suspect]
     Active Substance: GLIPIZIDE
     Route: 064
     Dates: start: 20140419, end: 20140715
  6. LANELI VITAMIN COMPLEX [Suspect]
     Active Substance: .ALPHA.-TOCOPHEROL ACETATE\ASCORBIC ACID\CALCIUM CARBONATE\CHOLECALCIFEROL\CYANOCOBALAMIN\FERROUS FUMARATE\FOLIC ACID\NIACINAMIDE\PYRIDOXINE HYDROCHLORIDE\RIBOFLAVIN\THIAMINE MONONITRATE\VITAMIN A PALMITATE\ZINC OXIDE
     Indication: VITAMIN SUPPLEMENTATION
     Route: 064
  7. PLIEXIL SHAMPOO [Suspect]
     Active Substance: SAW PALMETTO\VITAMINS\ZINC
     Route: 064
     Dates: start: 201408, end: 20140904
  8. PLIEXIL SOLUTION [Suspect]
     Active Substance: SAW PALMETTO\VITAMINS\ZINC
     Route: 064
     Dates: start: 201408, end: 20140904
  9. MACRODANTIN [Suspect]
     Active Substance: NITROFURANTOIN
     Indication: URINARY TRACT INFECTION
     Route: 064
     Dates: start: 20140718, end: 20140912
  10. UTROGESTAN [Suspect]
     Active Substance: PROGESTERONE
     Indication: PREMATURE SEPARATION OF PLACENTA
     Route: 064
     Dates: start: 20140715, end: 20140730

REACTIONS (6)
  - Maternal drugs affecting foetus [None]
  - Foetal death [None]
  - Abortion missed [None]
  - Heart disease congenital [None]
  - Hydrops foetalis [Fatal]
  - Premature separation of placenta [None]

NARRATIVE: CASE EVENT DATE: 20140904
